FAERS Safety Report 7098634-1 (Version None)
Quarter: 2010Q4

REPORT INFORMATION
  Report Type: 
  Country: None (occurrence: None)
  Receive Date: 20101112
  Receipt Date: 20101103
  Transmission Date: 20110411
  Serious: Yes (Hospitalization)
  Sender: FDA-Public Use
  Company Number: US-JNJFOC-20101101536

PATIENT
  Sex: Female

DRUGS (10)
  1. DOXORUBICIN HYDROCHLORIDE [Suspect]
     Indication: OVARIAN CANCER
     Route: 042
  2. BENADRYL [Concomitant]
     Indication: STOMATITIS
     Route: 049
  3. MAALOX [Concomitant]
     Indication: STOMATITIS
     Route: 065
  4. LIDOCAINE HYDROCHLORIDE IN PLASTIC CONTAINER [Concomitant]
     Indication: STOMATITIS
     Route: 065
  5. SERTRALINE HYDROCHLORIDE [Concomitant]
     Indication: DEPRESSION
     Route: 065
  6. ESOMEPRAZOLE [Concomitant]
     Indication: NAUSEA
     Route: 065
  7. PYRIDOXINE HCL [Concomitant]
     Indication: PROPHYLAXIS
     Route: 065
  8. DIPHENHYDRAMINE [Concomitant]
     Indication: PREMEDICATION
     Route: 042
  9. DEXAMETHASONE [Concomitant]
     Indication: PREMEDICATION
     Route: 042
  10. FAMOTIDINE [Concomitant]
     Indication: PREMEDICATION
     Route: 042

REACTIONS (1)
  - ABDOMINAL ABSCESS [None]
